FAERS Safety Report 22301749 (Version 1)
Quarter: 2023Q2

REPORT INFORMATION
  Report Type: Spontaneous
  Country: US (occurrence: US)
  Receive Date: 20230510
  Receipt Date: 20230510
  Transmission Date: 20230722
  Serious: No
  Sender: FDA-Public Use
  Company Number: US-BRISTOL-MYERS SQUIBB COMPANY-2023-065601

PATIENT
  Age: 51 Year
  Sex: Female

DRUGS (5)
  1. OPDIVO [Suspect]
     Active Substance: NIVOLUMAB
     Indication: Skin cancer
     Dosage: DOSE : 57 MG OPDIVO/170 MG YERVOY;     FREQ : EVERY 3 WEEKS
     Route: 042
     Dates: start: 20230410
  2. YERVOY [Suspect]
     Active Substance: IPILIMUMAB
     Indication: Skin cancer
     Route: 042
  3. VITAMINS NOS [Concomitant]
     Active Substance: VITAMINS
     Indication: Product used for unknown indication
  4. FISH OIL [Concomitant]
     Active Substance: FISH OIL
     Indication: Product used for unknown indication
  5. FLORASTOR [LACTOBACILLUS ACIDOPHILUS] [Concomitant]

REACTIONS (1)
  - Toxicity to various agents [Unknown]

NARRATIVE: CASE EVENT DATE: 20230410
